FAERS Safety Report 23039742 (Version 1)
Quarter: 2023Q4

REPORT INFORMATION
  Report Type: Spontaneous
  Country: US (occurrence: US)
  Receive Date: 20231006
  Receipt Date: 20231006
  Transmission Date: 20240110
  Serious: No
  Sender: FDA-Public Use
  Company Number: US-HORIZON THERAPEUTICS-HZN-2022-006943

PATIENT

DRUGS (5)
  1. KRYSTEXXA [Suspect]
     Active Substance: PEGLOTICASE
     Indication: Gout
     Dosage: FIRST INFUSION , EVERY 2 WEEKS  SOLUTION FOR INJECTION
     Route: 042
     Dates: start: 20220805
  2. KRYSTEXXA [Suspect]
     Active Substance: PEGLOTICASE
     Dosage: 2ND INFUSION EVERY 2 WEEKS
     Route: 042
     Dates: start: 2022
  3. KRYSTEXXA [Suspect]
     Active Substance: PEGLOTICASE
     Dosage: THIRD INFUSION
     Route: 042
     Dates: start: 2022
  4. DECADRON [Suspect]
     Active Substance: DEXAMETHASONE
     Indication: Gout
     Dosage: UNK
     Route: 065
  5. METHOTREXATE [Suspect]
     Active Substance: METHOTREXATE
     Indication: Product used for unknown indication
     Dosage: UNK
     Route: 065

REACTIONS (6)
  - Tremor [Recovering/Resolving]
  - Speech disorder [Recovering/Resolving]
  - Gait disturbance [Recovering/Resolving]
  - Dizziness [Recovering/Resolving]
  - Oropharyngeal pain [Recovering/Resolving]
  - Gout [Recovering/Resolving]

NARRATIVE: CASE EVENT DATE: 20220101
